FAERS Safety Report 4706666-0 (Version None)
Quarter: 2005Q3

REPORT INFORMATION
  Report Type: 
  Country: None (occurrence: None)
  Receive Date: 20050705
  Receipt Date: 20050627
  Transmission Date: 20060218
  Serious: Yes (Hospitalization)
  Sender: FDA-Public Use
  Company Number: FR-ROCHE-409024

PATIENT
  Age: 69 Year
  Sex: Male

DRUGS (6)
  1. ROCEPHIN [Suspect]
     Indication: BRONCHOPNEUMOPATHY
     Route: 030
     Dates: start: 20050520, end: 20050526
  2. MODOPAR [Concomitant]
     Dosage: STOPPED ON 26 MAY 2005 AND REINTRODUCED ON 03 JUNE 2005.
     Route: 048
  3. OMIX [Concomitant]
     Dosage: OMIX L.P. 0,4 MG.
     Route: 048
     Dates: end: 20050526
  4. PROSCAR [Concomitant]
     Route: 048
     Dates: end: 20050526
  5. CELEBREX [Concomitant]
     Route: 048
     Dates: end: 20050526
  6. ARICEPT [Concomitant]
     Route: 048
     Dates: end: 20050526

REACTIONS (2)
  - EOSINOPHILIA [None]
  - HEPATITIS [None]
